FAERS Safety Report 8837758 (Version 2)
Quarter: 2012Q4

REPORT INFORMATION
  Report Type: 
  Country: US (occurrence: US)
  Receive Date: 20121012
  Receipt Date: 20121120
  Transmission Date: 20130627
  Serious: Yes (Hospitalization, Other)
  Sender: FDA-Public Use
  Company Number: US-GENZYME-CLOF-1002344

PATIENT
  Age: 15 Year
  Sex: Male
  Weight: 42.7 kg

DRUGS (9)
  1. CLOLAR [Suspect]
     Dosage: 43 mg, qd
     Route: 042
     Dates: start: 20120820, end: 20120824
  2. CYCLOPHOSPHAMIDE [Suspect]
     Dosage: UNK
     Route: 065
     Dates: end: 20120824
  3. CYTARABINE [Suspect]
     Dosage: UNK
     Route: 065
     Dates: end: 20120802
  4. VP-16 [Suspect]
     Dosage: UNK
     Route: 065
     Dates: end: 20120824
  5. MERCAPTOPURINE [Suspect]
     Dosage: UNK
     Route: 065
     Dates: end: 20120806
  6. METHOTREXATE [Suspect]
     Dosage: UNK
     Route: 065
     Dates: end: 20120813
  7. PEGASPARGASE [Suspect]
     Dosage: UNK
     Route: 065
     Dates: end: 20120903
  8. VINCRISTINE SULFATE [Suspect]
     Dosage: UNK
     Route: 065
     Dates: end: 20120903
  9. AZITHROMYCIN [Concomitant]
     Dosage: UNK
     Route: 065

REACTIONS (6)
  - Stomatococcal infection [Recovered/Resolved]
  - Caecitis [Recovered/Resolved with Sequelae]
  - Decreased appetite [Not Recovered/Not Resolved]
  - Weight decreased [Not Recovered/Not Resolved]
  - Neutropenia [Recovered/Resolved]
  - Macule [Recovered/Resolved]
